FAERS Safety Report 8294385-6 (Version None)
Quarter: 2012Q2

REPORT INFORMATION
  Report Type: 
  Country: None (occurrence: None)
  Receive Date: 20120418
  Receipt Date: 20120409
  Transmission Date: 20120825
  Serious: Yes (Other)
  Sender: FDA-Public Use
  Company Number: JP-SANOFI-AVENTIS-2012SA024324

PATIENT
  Age: 61 Year
  Sex: Female
  Weight: 56.1 kg

DRUGS (8)
  1. SOLOSTAR [Suspect]
     Indication: DEVICE THERAPY
     Dates: start: 20090108
  2. INSULIN ASPART [Concomitant]
     Dosage: DOSE: 2-4-5 UNITS
  3. BIGUANIDES [Concomitant]
     Indication: TYPE 2 DIABETES MELLITUS
     Dates: start: 20071004
  4. HMG COA REDUCTASE INHIBITORS [Concomitant]
  5. ANGIOTENSIN II ANTAGONISTS [Concomitant]
  6. INSULIN ASPART [Concomitant]
     Indication: TYPE 2 DIABETES MELLITUS
     Route: 058
     Dates: start: 20080410
  7. PLATELET AGGREGATION INHIBITORS [Concomitant]
  8. LANTUS [Suspect]
     Indication: TYPE 2 DIABETES MELLITUS
     Route: 058
     Dates: start: 20090108

REACTIONS (2)
  - MYOCARDIAL INFARCTION [None]
  - PERCUTANEOUS CORONARY INTERVENTION [None]
